FAERS Safety Report 16864636 (Version 3)
Quarter: 2019Q4

REPORT INFORMATION
  Report Type: Report from Study
  Country: US (occurrence: US)
  Receive Date: 20190928
  Receipt Date: 20191120
  Transmission Date: 20200122
  Serious: No
  Sender: FDA-Public Use
  Company Number: US-ALEXION PHARMACEUTICALS INC.-A201914473

PATIENT
  Sex: Female

DRUGS (2)
  1. INFLUENZA VACCINE [Suspect]
     Active Substance: INFLUENZA VIRUS VACCINE
     Indication: IMMUNISATION
     Route: 065
  2. SOLIRIS [Suspect]
     Active Substance: ECULIZUMAB
     Indication: PRODUCT USED FOR UNKNOWN INDICATION
     Route: 065

REACTIONS (13)
  - Skin exfoliation [Unknown]
  - Haemoglobin decreased [Unknown]
  - Alopecia [Unknown]
  - Neck pain [Unknown]
  - Muscle spasms [Unknown]
  - Dialysis [Recovered/Resolved]
  - Dry skin [Unknown]
  - Acne [Unknown]
  - Headache [Unknown]
  - Pulse abnormal [Unknown]
  - Sleep disorder [Unknown]
  - Rash erythematous [Unknown]
  - Ear pain [Unknown]
